FAERS Safety Report 8932128 (Version 1)
Quarter: 2012Q4

REPORT INFORMATION
  Report Type: 
  Country: KR (occurrence: KR)
  Receive Date: 20121128
  Receipt Date: 20121128
  Transmission Date: 20130627
  Serious: Yes (Other)
  Sender: FDA-Public Use
  Company Number: KR-PFIZER INC-2012294827

PATIENT
  Age: 60 Year
  Sex: Female

DRUGS (2)
  1. METRONIDAZOLE [Suspect]
     Indication: BRAIN ABSCESS
     Dosage: 15 g, UNK
     Route: 042
  2. METRONIDAZOLE [Suspect]
     Dosage: 1.5 g, per day (total dosage, 156.5 g)

REACTIONS (1)
  - Toxic encephalopathy [Recovered/Resolved]
